FAERS Safety Report 7229927-2 (Version None)
Quarter: 2011Q1

REPORT INFORMATION
  Report Type: 
  Country: None (occurrence: None)
  Receive Date: 20110117
  Receipt Date: 20110113
  Transmission Date: 20110831
  Serious: Yes (Other)
  Sender: FDA-Public Use
  Company Number: US-PFIZER INC-2011009223

PATIENT
  Sex: Female
  Weight: 79 kg

DRUGS (2)
  1. CHANTIX [Suspect]
     Indication: SMOKING CESSATION THERAPY
     Dosage: 0.5 MG, 1X/DAY
     Dates: start: 20100201, end: 20100101
  2. NEURONTIN [Suspect]
     Indication: NEUROPATHY PERIPHERAL
     Dosage: 100 MG, 1X/DAY
     Dates: start: 20101101

REACTIONS (11)
  - VISION BLURRED [None]
  - NAUSEA [None]
  - NEUROPATHY PERIPHERAL [None]
  - MUSCLE SPASMS [None]
  - BACK DISORDER [None]
  - PARAESTHESIA [None]
  - MALAISE [None]
  - HEART RATE DECREASED [None]
  - BLOOD PRESSURE DECREASED [None]
  - HYPOAESTHESIA [None]
  - SOMNOLENCE [None]
